FAERS Safety Report 12704409 (Version 2)
Quarter: 2016Q3

REPORT INFORMATION
  Report Type: Spontaneous
  Country: FR (occurrence: FR)
  Receive Date: 20160831
  Receipt Date: 20160927
  Transmission Date: 20161109
  Serious: Yes (Other)
  Sender: FDA-Public Use
  Company Number: FR-MYLANLABS-2016M1036527

PATIENT

DRUGS (1)
  1. METFOMIN MYLAN [Suspect]
     Active Substance: METFORMIN HYDROCHLORIDE
     Indication: TYPE 2 DIABETES MELLITUS
     Dosage: 500 MG, BID

REACTIONS (4)
  - Fatigue [Unknown]
  - Skin exfoliation [Unknown]
  - Diarrhoea [Not Recovered/Not Resolved]
  - Faeces discoloured [Recovered/Resolved]
